FAERS Safety Report 9448920 (Version 1)
Quarter: 2013Q3

REPORT INFORMATION
  Report Type: Spontaneous
  Country: US (occurrence: US)
  Receive Date: 20130808
  Receipt Date: 20130808
  Transmission Date: 20140515
  Serious: Yes (Hospitalization, Other)
  Sender: FDA-Public Use
  Company Number: US-ACTAVIS-2013-13447

PATIENT
  Age: 92 Year
  Sex: Female

DRUGS (4)
  1. AMIODARONE HYDROCHLORIDE (UNKNOWN) [Suspect]
     Indication: ATRIAL FIBRILLATION
     Dosage: 200 MG, DAILY
     Route: 065
  2. VERAPAMIL HYDROCHLORIDE (WATSON LABORATORIES) (VERAPAMIL HYDROCHLORIDE) UNKNOWN, UNK UNK [Suspect]
     Indication: PRODUCT USED FOR UNKNOWN INDICATION
     Dosage: UNK
     Route: 065
  3. LISINOPRIL [Concomitant]
     Indication: PRODUCT USED FOR UNKNOWN INDICATION
     Dosage: UNK
     Route: 065
  4. WARFARIN [Concomitant]
     Indication: PRODUCT USED FOR UNKNOWN INDICATION
     Dosage: UNK
     Route: 065

REACTIONS (6)
  - Acute respiratory distress syndrome [Recovered/Resolved]
  - Acute interstitial pneumonitis [Recovered/Resolved]
  - Hypotension [Recovered/Resolved]
  - Bradycardia [Recovered/Resolved]
  - Blood creatinine increased [Unknown]
  - Transaminases increased [Unknown]
